FAERS Safety Report 23316807 (Version 1)
Quarter: 2023Q4

REPORT INFORMATION
  Report Type: Spontaneous
  Country: US (occurrence: None)
  Receive Date: 20231219
  Receipt Date: 20231219
  Transmission Date: 20240110
  Serious: No
  Sender: FDA-Public Use
  Company Number: US-ROCHE-3277925

PATIENT
  Sex: Male

DRUGS (5)
  1. HEMLIBRA [Suspect]
     Active Substance: EMICIZUMAB-KXWH
     Indication: Factor VIII deficiency
     Dosage: DOSE-60MG/0.4ML?GIVE 1.5 ML (225MG) SUBCUTANEOUSLY EVERY TWO WEEKS
     Route: 058
  2. HEMLIBRA [Suspect]
     Active Substance: EMICIZUMAB-KXWH
     Dosage: DOSE- 150 MG/ML?INJECT A TOTAL DOSE OF 246MG (1.64ML)[WITHDRAW 1ML FROM 150MG VIAL AND 0.64ML FROM 1
     Route: 058
  3. HEMLIBRA [Suspect]
     Active Substance: EMICIZUMAB-KXWH
     Dosage: DOSE- 105 MG/0.7 ML?INJECT A TOTAL DOSE OF 246MG (1.64ML)[WITHDRAW 1ML FROM 150MG VIAL AND 0.64ML FR
     Route: 058
  4. RITUXAN [Suspect]
     Active Substance: RITUXIMAB
     Indication: Product used for unknown indication
     Route: 065
  5. CONCERTA [Concomitant]
     Active Substance: METHYLPHENIDATE HYDROCHLORIDE

REACTIONS (2)
  - Haemorrhage [Recovering/Resolving]
  - Drug hypersensitivity [Unknown]
